FAERS Safety Report 17881849 (Version 3)
Quarter: 2020Q3

REPORT INFORMATION
  Report Type: Spontaneous
  Country: US (occurrence: US)
  Receive Date: 20200610
  Receipt Date: 20200717
  Transmission Date: 20201103
  Serious: No
  Sender: FDA-Public Use
  Company Number: US-JNJFOC-20200609433

PATIENT
  Sex: Female

DRUGS (3)
  1. SIMPONI ARIA [Suspect]
     Active Substance: GOLIMUMAB
     Indication: ANKYLOSING SPONDYLITIS
     Route: 042
  2. METHOTREXATE. [Concomitant]
     Active Substance: METHOTREXATE
     Indication: ANKYLOSING SPONDYLITIS
     Route: 048
  3. RECLAST [Concomitant]
     Active Substance: ZOLEDRONIC ACID

REACTIONS (11)
  - Rash [Recovered/Resolved]
  - Blood pressure increased [Recovered/Resolved]
  - Rash [Unknown]
  - Skin lesion [Unknown]
  - Nervous system disorder [Unknown]
  - Malabsorption [Unknown]
  - Anxiety [Not Recovered/Not Resolved]
  - Iron deficiency [Unknown]
  - Pruritus [Not Recovered/Not Resolved]
  - Anaemia [Not Recovered/Not Resolved]
  - Formication [Recovering/Resolving]
